FAERS Safety Report 5266348-6 (Version None)
Quarter: 2007Q1

REPORT INFORMATION
  Report Type: 
  Country: None (occurrence: None)
  Receive Date: 20070315
  Receipt Date: 20070309
  Transmission Date: 20070707
  Serious: Yes (Hospitalization)
  Sender: FDA-Public Use
  Company Number: NL-SANOFI-SYNTHELABO-F01200700319

PATIENT
  Sex: Male

DRUGS (4)
  1. CETUXIMAB [Suspect]
     Dosage: 400 MG/M2 DAY 1 OF CYCLE 1, THEREAFTER 250 MG/M2 WEEKLY 500 MG
     Route: 041
     Dates: start: 20070220, end: 20070220
  2. BEVACIZUMAB [Suspect]
     Dosage: 600 MG
     Route: 041
     Dates: start: 20070206, end: 20070206
  3. CAPECITABINE [Suspect]
     Dosage: DAYS 1-14 (1250 MG/M2 AFTER CYCLE 6)
     Route: 048
     Dates: start: 20070206
  4. OXALIPLATIN [Suspect]
     Indication: COLORECTAL CANCER
     Dosage: 200 MG
     Route: 041
     Dates: start: 20070206, end: 20070206

REACTIONS (1)
  - HYPOMAGNESAEMIA [None]
